FAERS Safety Report 8485139-6 (Version None)
Quarter: 2012Q3

REPORT INFORMATION
  Report Type: 
  Country: None (occurrence: None)
  Receive Date: 20120703
  Receipt Date: 20120625
  Transmission Date: 20120928
  Serious: Yes (Hospitalization)
  Sender: FDA-Public Use
  Company Number: US-BAYER-2011-075296

PATIENT
  Age: 43 Year
  Sex: Female

DRUGS (7)
  1. RETIN-A MICRO [Concomitant]
     Dosage: 0.04 %, UNK
  2. YAZ [Suspect]
     Indication: ACNE
  3. YASMIN [Suspect]
  4. ANTIHISTAMINES [Concomitant]
     Indication: SEASONAL ALLERGY
  5. NEOBENZ [Concomitant]
     Dosage: 5.5 %, UNK
  6. DOXYCYCLINE HYCLATE [Concomitant]
     Dosage: 100 MG, BID FOR 10 DAYS
  7. PANDEL [Concomitant]

REACTIONS (2)
  - PULMONARY EMBOLISM [None]
  - DEEP VEIN THROMBOSIS [None]
